FAERS Safety Report 12966089 (Version 1)
Quarter: 2016Q4

REPORT INFORMATION
  Report Type: Spontaneous
  Country: US (occurrence: US)
  Receive Date: 20161120
  Receipt Date: 20161120
  Transmission Date: 20170207
  Serious: Yes (Other)
  Sender: FDA-Public Use
  Company Number: None

PATIENT
  Age: 18 Year
  Sex: Female
  Weight: 47.25 kg

DRUGS (1)
  1. BUPROPION XL [Suspect]
     Active Substance: BUPROPION
     Indication: DEPRESSION
     Route: 048
     Dates: start: 20160827, end: 20160830

REACTIONS (5)
  - Suicidal ideation [None]
  - Flushing [None]
  - Hot flush [None]
  - Crying [None]
  - Depression [None]

NARRATIVE: CASE EVENT DATE: 20160830
